FAERS Safety Report 12238763 (Version 1)
Quarter: 2016Q2

REPORT INFORMATION
  Report Type: Spontaneous
  Country: US (occurrence: US)
  Receive Date: 20160405
  Receipt Date: 20160405
  Transmission Date: 20160815
  Serious: No
  Sender: FDA-Public Use
  Company Number: US-TEVA-628021USA

PATIENT
  Sex: Female
  Weight: 86.71 kg

DRUGS (1)
  1. WARFARIN [Suspect]
     Active Substance: WARFARIN
     Indication: ANTICOAGULANT THERAPY
     Dosage: 8.5 MG TO 9.0 MG
     Route: 065

REACTIONS (1)
  - Drug ineffective [Unknown]
